FAERS Safety Report 21056483 (Version 1)
Quarter: 2022Q3

REPORT INFORMATION
  Report Type: Report from Study
  Country: CR (occurrence: CR)
  Receive Date: 20220708
  Receipt Date: 20220708
  Transmission Date: 20221027
  Serious: Yes (Other)
  Sender: FDA-Public Use
  Company Number: CR-NOVARTISPH-NVSC2022CR152463

PATIENT
  Age: 67 Year
  Sex: Male

DRUGS (2)
  1. EXFORGE HCT [Suspect]
     Active Substance: AMLODIPINE BESYLATE\HYDROCHLOROTHIAZIDE\VALSARTAN
     Indication: Product used for unknown indication
     Dosage: 10/25/320 MG, STARTED APPROXIMATELY 2 YEARS AGO, STOPPED 7 DAYS AGO
     Route: 065
  2. EXFORGE HCT [Suspect]
     Active Substance: AMLODIPINE BESYLATE\HYDROCHLOROTHIAZIDE\VALSARTAN
     Dosage: 5/12.5/160 MG, STARTED 7 DAYS AGO
     Route: 065

REACTIONS (3)
  - Infarction [Unknown]
  - Blood pressure decreased [Recovering/Resolving]
  - Urine output decreased [Recovering/Resolving]
